FAERS Safety Report 5622920-2 (Version None)
Quarter: 2008Q1

REPORT INFORMATION
  Report Type: 
  Country: None (occurrence: None)
  Receive Date: 20080212
  Receipt Date: 20080207
  Transmission Date: 20080703
  Serious: Yes (Life-Threatening, Other)
  Sender: FDA-Public Use
  Company Number: PHBS2006BR09917

PATIENT
  Age: 52 Year
  Sex: Female
  Weight: 80 kg

DRUGS (13)
  1. OLCADIL [Suspect]
     Indication: DEPRESSION
     Dosage: 2 MG, QHS
     Route: 048
     Dates: start: 19840101, end: 19980101
  2. OLCADIL [Suspect]
     Dosage: 2 MG, QHS
     Route: 048
     Dates: start: 19980101
  3. OLCADIL [Suspect]
     Dosage: 4 MG/D
     Route: 048
     Dates: start: 20071101, end: 20080116
  4. OLCADIL [Suspect]
     Dosage: 2 MG, QD
     Route: 048
     Dates: start: 20080117
  5. CLONAZEPAM [Concomitant]
     Indication: DEPRESSION
     Dosage: 2 MG, QD
     Route: 048
  6. VIOXX [Concomitant]
  7. FRONTAL [Concomitant]
  8. MODURETIC 5-50 [Concomitant]
     Indication: DIURETIC THERAPY
     Dosage: 50 MG, QD
     Route: 048
     Dates: start: 19960101
  9. GAMALINE V [Concomitant]
     Indication: BREAST PAIN
     Dosage: UNK, QD
     Route: 048
     Dates: end: 20060901
  10. ANADOR [Concomitant]
     Indication: PAIN
     Dosage: WHEN SHE HAS PAIN
     Route: 065
  11. ALMEIDA PRADO 46 [Concomitant]
     Indication: LAXATIVE SUPPORTIVE CARE
     Dosage: EVERY 2 DAYS
     Route: 065
  12. TEGRETOL [Suspect]
     Indication: DEPRESSION
     Dosage: 200 MG/D
     Route: 048
     Dates: start: 20080130, end: 20080204
  13. TEGRETOL [Suspect]
     Dosage: 400 MG/D
     Route: 048
     Dates: start: 20080205

REACTIONS (31)
  - ABDOMINAL DISCOMFORT [None]
  - BLOOD PRESSURE DECREASED [None]
  - CONSTIPATION [None]
  - CRYING [None]
  - DEPRESSION [None]
  - DISTURBANCE IN ATTENTION [None]
  - DIZZINESS [None]
  - DRUG INEFFECTIVE [None]
  - DRUG WITHDRAWAL SYNDROME [None]
  - FATIGUE [None]
  - FEELING ABNORMAL [None]
  - FLUID RETENTION [None]
  - HAEMATOCHEZIA [None]
  - HYPERTENSION [None]
  - HYSTERECTOMY [None]
  - INSOMNIA [None]
  - MALAISE [None]
  - MEMORY IMPAIRMENT [None]
  - NERVOUSNESS [None]
  - OEDEMA [None]
  - OEDEMA PERIPHERAL [None]
  - PALLOR [None]
  - PREMENSTRUAL SYNDROME [None]
  - RECTAL HAEMORRHAGE [None]
  - SKIN IRRITATION [None]
  - SOMNOLENCE [None]
  - SPEECH DISORDER [None]
  - SYNCOPE [None]
  - TREMOR [None]
  - URINARY RETENTION [None]
  - WEIGHT INCREASED [None]
